FAERS Safety Report 18839716 (Version 1)
Quarter: 2021Q1

REPORT INFORMATION
  Report Type: Report from Study
  Country: US (occurrence: US)
  Receive Date: 20210204
  Receipt Date: 20210204
  Transmission Date: 20210419
  Serious: No
  Sender: FDA-Public Use
  Company Number: US-EXELIXIS-CABO-20035405

PATIENT
  Age: 67 Year
  Sex: Male
  Weight: 74.83 kg

DRUGS (21)
  1. ADVIL [Concomitant]
     Active Substance: IBUPROFEN
  2. ZOFRAN [Concomitant]
     Active Substance: ONDANSETRON HYDROCHLORIDE
  3. OMEPRAZOLE. [Concomitant]
     Active Substance: OMEPRAZOLE
  4. AFINITOR [Concomitant]
     Active Substance: EVEROLIMUS
  5. LORAZEPAM. [Concomitant]
     Active Substance: LORAZEPAM
  6. AUGMENTIN [Concomitant]
     Active Substance: AMOXICILLIN\CLAVULANATE POTASSIUM
  7. OXYCONTIN [Concomitant]
     Active Substance: OXYCODONE HYDROCHLORIDE
  8. LENVIMA [Concomitant]
     Active Substance: LENVATINIB
  9. HYDROCODONE/ACETAMINOPHEN [Concomitant]
     Active Substance: ACETAMINOPHEN\HYDROCODONE
  10. DIAZEPAM. [Concomitant]
     Active Substance: DIAZEPAM
  11. SYNTHROID [Concomitant]
     Active Substance: LEVOTHYROXINE SODIUM
  12. CABOMETYX [Suspect]
     Active Substance: CABOZANTINIB S-MALATE
     Indication: RENAL CANCER
     Dosage: 40 MG, QD
     Route: 048
     Dates: start: 20191202
  13. AMLODIPINE [Concomitant]
     Active Substance: AMLODIPINE BESYLATE
  14. DEXAMETHASONE. [Concomitant]
     Active Substance: DEXAMETHASONE
  15. SENNA [Concomitant]
     Active Substance: SENNA LEAF\SENNOSIDES\SENNOSIDES A AND B
  16. FLUZONE [Concomitant]
     Active Substance: INFLUENZA A VIRUS A/CALIFORNIA/7/2009 X-179A (H1N1) ANTIGEN (FORMALDEHYDE INACTIVATED)\INFLUENZA A VIRUS A/VICTORIA/210/2009 X-187 (H3N2) ANTIGEN (FORMALDEHYDE INACTIVATED)\INFLUENZA B VIRUS B/BRISBANE/60/2008 ANTIGEN (FORMALDEHYDE INACTIVATED)
  17. LOMOTIL [Concomitant]
     Active Substance: ATROPINE SULFATE\DIPHENOXYLATE HYDROCHLORIDE
  18. OXYCODONE [Concomitant]
     Active Substance: OXYCODONE
  19. TYLENOL [Concomitant]
     Active Substance: ACETAMINOPHEN
  20. CHLORHEXIDINE [Concomitant]
     Active Substance: CHLORHEXIDINE
  21. EVEROLIMUS. [Concomitant]
     Active Substance: EVEROLIMUS

REACTIONS (4)
  - Abdominal discomfort [Unknown]
  - Nausea [Unknown]
  - Blood pressure increased [Unknown]
  - Epistaxis [Not Recovered/Not Resolved]

NARRATIVE: CASE EVENT DATE: 20201220
